FAERS Safety Report 11555134 (Version 1)
Quarter: 2015Q3

REPORT INFORMATION
  Report Type: Spontaneous
  Country: KR (occurrence: KR)
  Receive Date: 20150925
  Receipt Date: 20150925
  Transmission Date: 20151125
  Serious: Yes (Other)
  Sender: FDA-Public Use
  Company Number: KR-PFIZER INC-2015314632

PATIENT
  Age: 39 Year
  Sex: Female

DRUGS (1)
  1. VIAGRA [Suspect]
     Active Substance: SILDENAFIL CITRATE
     Indication: SUICIDE ATTEMPT
     Dosage: 1500 MG (30 TABLETS OF 50 MG), SINGLE
     Route: 048

REACTIONS (3)
  - Intentional overdose [Unknown]
  - Visual field defect [Recovering/Resolving]
  - Colour blindness acquired [Recovered/Resolved]
